FAERS Safety Report 5879299-0 (Version None)
Quarter: 2008Q3

REPORT INFORMATION
  Report Type: 
  Country: None (occurrence: None)
  Receive Date: 20080909
  Receipt Date: 20080909
  Transmission Date: 20090109
  Serious: Yes (Hospitalization, Other)
  Sender: FDA-Public Use
  Company Number: None

PATIENT
  Sex: Male
  Weight: 106.6 kg

DRUGS (2)
  1. CISPLATIN [Suspect]
     Indication: NEOPLASM
     Dosage: 190 MG
     Dates: start: 20080722, end: 20080729
  2. ERBITUX [Suspect]
     Indication: NEOPLASM
     Dosage: 593 MG
     Dates: start: 20080722, end: 20080804

REACTIONS (7)
  - BLOOD CHLORIDE DECREASED [None]
  - BLOOD MAGNESIUM DECREASED [None]
  - BLOOD POTASSIUM DECREASED [None]
  - BLOOD SODIUM DECREASED [None]
  - DEEP VEIN THROMBOSIS [None]
  - DEHYDRATION [None]
  - HYPOPHAGIA [None]
